FAERS Safety Report 26007819 (Version 1)
Quarter: 2025Q4

REPORT INFORMATION
  Report Type: Spontaneous
  Country: ZA (occurrence: ZA)
  Receive Date: 20251106
  Receipt Date: 20251106
  Transmission Date: 20260118
  Serious: Yes (Other)
  Sender: ASCEND THERAPEUTICS US, LLC
  Company Number: ZA-Ascend Therapeutics US, LLC-2188038

PATIENT
  Age: 44 Year
  Sex: Female

DRUGS (2)
  1. ANDROGEL [Suspect]
     Active Substance: TESTOSTERONE
     Indication: Product used for unknown indication
     Dates: start: 2024
  2. ANDROGEL 1% [Suspect]
     Active Substance: TESTOSTERONE

REACTIONS (3)
  - Enlarged clitoris [Unknown]
  - Accidental exposure to product [Unknown]
  - Dysphonia [Unknown]

NARRATIVE: CASE EVENT DATE: 20240101
